FAERS Safety Report 7506300-0 (Version None)
Quarter: 2011Q2

REPORT INFORMATION
  Report Type: 
  Country: None (occurrence: None)
  Receive Date: 20110526
  Receipt Date: 20110520
  Transmission Date: 20111010
  Serious: Yes (Life-Threatening)
  Sender: FDA-Public Use
  Company Number: JP-EISAI INC-E0800-00075-SOL-JP

PATIENT
  Sex: Male

DRUGS (3)
  1. SALAGEN [Suspect]
     Route: 048
     Dates: start: 20070420, end: 20070510
  2. SALAGEN [Suspect]
     Route: 048
     Dates: start: 20070511, end: 20070524
  3. SALAGEN [Suspect]
     Route: 048
     Dates: start: 20070525

REACTIONS (1)
  - VOCAL CORD PARALYSIS [None]
